FAERS Safety Report 14869030 (Version 2)
Quarter: 2018Q4

REPORT INFORMATION
  Report Type: Spontaneous
  Country: US (occurrence: US)
  Receive Date: 20180509
  Receipt Date: 20181106
  Transmission Date: 20190204
  Serious: Yes (Other)
  Sender: FDA-Public Use
  Company Number: PHEH2018US017708

PATIENT
  Age: 22 Year
  Sex: Female

DRUGS (2)
  1. VOTRIENT [Suspect]
     Active Substance: PAZOPANIB HYDROCHLORIDE
     Indication: SOFT TISSUE SARCOMA
     Dosage: 600 MG, QD
     Route: 048
     Dates: start: 20180120
  2. VOTRIENT [Suspect]
     Active Substance: PAZOPANIB HYDROCHLORIDE
     Indication: MALIGNANT CONNECTIVE TISSUE NEOPLASM
     Dosage: 400 MG, QD
     Route: 048

REACTIONS (6)
  - Nausea [Unknown]
  - Headache [Unknown]
  - Toxicity to various agents [Unknown]
  - Diarrhoea [Unknown]
  - Hair colour changes [Unknown]
  - Fatigue [Unknown]

NARRATIVE: CASE EVENT DATE: 20180122
